FAERS Safety Report 19953500 (Version 1)
Quarter: 2021Q4

REPORT INFORMATION
  Report Type: Spontaneous
  Country: US (occurrence: US)
  Receive Date: 20211012
  Receipt Date: 20211012
  Transmission Date: 20220303
  Serious: Yes (Hospitalization)
  Sender: FDA-Public Use
  Company Number: None

PATIENT
  Age: 72 Year
  Sex: Male
  Weight: 91.17 kg

DRUGS (1)
  1. DABIGATRAN ETEXILATE [Suspect]
     Active Substance: DABIGATRAN ETEXILATE
     Indication: Atrial fibrillation
     Route: 048
     Dates: start: 20150721, end: 20210804

REACTIONS (4)
  - Haemorrhage [None]
  - Anaemia [None]
  - Gastric haemorrhage [None]
  - Haemorrhoidal haemorrhage [None]

NARRATIVE: CASE EVENT DATE: 20210716
